FAERS Safety Report 20961452 (Version 1)
Quarter: 2022Q2

REPORT INFORMATION
  Report Type: Other
  Country: US (occurrence: None)
  Receive Date: 20220615
  Receipt Date: 20220615
  Transmission Date: 20220721
  Serious: Yes (Hospitalization)
  Sender: FDA-Public Use
  Company Number: US-ROCHE-1917732

PATIENT
  Age: 47 Year
  Sex: Male

DRUGS (2)
  1. CELLCEPT [Suspect]
     Active Substance: MYCOPHENOLATE MOFETIL
     Indication: Pemphigoid
     Route: 048
  2. CELLCEPT [Suspect]
     Active Substance: MYCOPHENOLATE MOFETIL
     Indication: Pemphigoid
     Dosage: 1 PILL X 6 PER DAY 1-2 HOURS AFTER MEAL
     Route: 065

REACTIONS (4)
  - Sinusitis [Unknown]
  - Diarrhoea [Unknown]
  - Off label use [Unknown]
  - Nasal abscess [Unknown]

NARRATIVE: CASE EVENT DATE: 20160914
